FAERS Safety Report 12433991 (Version 1)
Quarter: 2016Q2

REPORT INFORMATION
  Report Type: Spontaneous
  Country: TW (occurrence: TW)
  Receive Date: 20160603
  Receipt Date: 20160603
  Transmission Date: 20160815
  Serious: Yes (Other)
  Sender: FDA-Public Use
  Company Number: TW-MYLANLABS-2016M1023048

PATIENT

DRUGS (3)
  1. CISPLATIN. [Suspect]
     Active Substance: CISPLATIN
     Indication: ADENOID CYSTIC CARCINOMA
     Dosage: FOR 1 HOUR; 2 CYCLES RECEIVED
     Route: 013
     Dates: start: 201305
  2. MITOMYCIN. [Suspect]
     Active Substance: MITOMYCIN
     Indication: ADENOID CYSTIC CARCINOMA
     Dosage: FOR 10 MINUTES; 2 CYCLES RECEIVED
     Route: 013
     Dates: start: 201305
  3. BEVACIZUMAB [Suspect]
     Active Substance: BEVACIZUMAB
     Indication: ADENOID CYSTIC CARCINOMA
     Dosage: FOR 1 HOUR ON DAY 1; 2 CYCLES RECEIVED
     Route: 013
     Dates: start: 201305

REACTIONS (2)
  - Tumour haemorrhage [Recovered/Resolved]
  - Pigmentation disorder [Recovered/Resolved]
